FAERS Safety Report 20945160 (Version 1)
Quarter: 2022Q2

REPORT INFORMATION
  Report Type: Spontaneous
  Country: US (occurrence: None)
  Receive Date: 20220609
  Receipt Date: 20220609
  Transmission Date: 20220721
  Serious: No
  Sender: FDA-Public Use
  Company Number: None

PATIENT
  Sex: Male

DRUGS (1)
  1. HUMIRA [Suspect]
     Active Substance: ADALIMUMAB
     Indication: Crohn^s disease
     Dosage: OTHER QUANTITY : 40 /0.4MG/ML;?OTHER FREQUENCY : Q14 DAYS;?
     Route: 058
     Dates: start: 20210503, end: 20220513

REACTIONS (1)
  - Drug ineffective [None]
